FAERS Safety Report 8838103 (Version 1)
Quarter: 2012Q4

REPORT INFORMATION
  Report Type: Report from Study
  Country: US (occurrence: US)
  Receive Date: 20121012
  Receipt Date: 20121012
  Transmission Date: 20130627
  Serious: Yes (Hospitalization, Other)
  Sender: FDA-Public Use
  Company Number: US-ASTELLAS-2012US009983

PATIENT
  Age: 55 None
  Sex: Female

DRUGS (15)
  1. ERLOTINIB TABLET [Suspect]
     Indication: NON-SMALL CELL LUNG CANCER
     Dosage: 150 mg, UID/QD
     Route: 048
     Dates: start: 20100915
  2. ERLOTINIB TABLET [Suspect]
     Dosage: 150 mg, UID/QD
     Route: 048
     Dates: start: 20120717, end: 20120814
  3. ERLOTINIB TABLET [Suspect]
     Dosage: 150 mg, UID/QD
     Route: 048
     Dates: start: 20120911, end: 20120914
  4. MDX-1106 [Suspect]
     Indication: NON-SMALL CELL LUNG CANCER
     Dosage: 3 mg/kg, Q2W
     Route: 042
     Dates: start: 20120717, end: 20120814
  5. MDX-1106 [Suspect]
     Dosage: 3 mg/kg, Q2W
     Route: 042
     Dates: start: 20120911, end: 20120914
  6. SERTRALINE HCL [Concomitant]
     Indication: PRODUCT USED FOR UNKNOWN INDICATION
     Dosage: UNK
     Route: 065
     Dates: start: 201008
  7. LUNESTA [Concomitant]
     Indication: PRODUCT USED FOR UNKNOWN INDICATION
     Dosage: UNK
     Route: 065
     Dates: start: 2011
  8. MULTIVITAMINS, PLAIN [Concomitant]
     Indication: PRODUCT USED FOR UNKNOWN INDICATION
     Dosage: UNK
     Route: 065
     Dates: start: 201201
  9. EUCERIN                            /00481901/ [Concomitant]
     Indication: PRODUCT USED FOR UNKNOWN INDICATION
     Dosage: UNK
     Route: 065
     Dates: start: 2010
  10. GOLD BOND [Concomitant]
     Indication: PRODUCT USED FOR UNKNOWN INDICATION
     Dosage: UNK
     Route: 065
     Dates: start: 201205
  11. IMODIUM [Concomitant]
     Indication: PRODUCT USED FOR UNKNOWN INDICATION
     Dosage: UNK
     Route: 065
     Dates: start: 20120730
  12. CLINDAMYCIN [Concomitant]
     Indication: PRODUCT USED FOR UNKNOWN INDICATION
     Dosage: UNK
     Route: 065
     Dates: start: 20120701
  13. CLOBETASOL PROPIONATE [Concomitant]
     Indication: PRODUCT USED FOR UNKNOWN INDICATION
     Dosage: UNK
     Route: 065
     Dates: start: 20120701
  14. TRAMADOL [Concomitant]
     Indication: PRODUCT USED FOR UNKNOWN INDICATION
     Dosage: UNK
     Route: 065
     Dates: start: 20120822
  15. MAGIC MOUTHWASH [Concomitant]
     Indication: PRODUCT USED FOR UNKNOWN INDICATION
     Dosage: UNK
     Route: 065

REACTIONS (14)
  - Autoimmune thyroiditis [Unknown]
  - Blood bilirubin increased [Recovering/Resolving]
  - Alanine aminotransferase increased [Recovering/Resolving]
  - Aspartate aminotransferase increased [Recovering/Resolving]
  - Arthropod sting [Unknown]
  - Hyperthyroidism [Unknown]
  - Agitation [Unknown]
  - Drug resistance [Unknown]
  - Joint swelling [Unknown]
  - Fatigue [Recovering/Resolving]
  - Insomnia [Unknown]
  - Rash pruritic [Recovering/Resolving]
  - Paraesthesia [Unknown]
  - Stomatitis [Unknown]
